FAERS Safety Report 17602911 (Version 1)
Quarter: 2020Q1

REPORT INFORMATION
  Report Type: Spontaneous
  Country: US (occurrence: US)
  Receive Date: 20200331
  Receipt Date: 20200331
  Transmission Date: 20200409
  Serious: No
  Sender: FDA-Public Use
  Company Number: US-DRREDDYS-USA/USA/20/0120969

PATIENT
  Age: 48 Year
  Sex: Female
  Weight: 56.7 kg

DRUGS (1)
  1. HABITROL [Suspect]
     Active Substance: NICOTINE
     Indication: TOBACCO USER
     Route: 062
     Dates: start: 20200310, end: 20200318

REACTIONS (7)
  - Nervousness [Unknown]
  - Dry mouth [Unknown]
  - Fear [Unknown]
  - Treatment noncompliance [Unknown]
  - Product dose omission [Unknown]
  - Application site erythema [Unknown]
  - Product adhesion issue [Unknown]
